FAERS Safety Report 19034869 (Version 1)
Quarter: 2021Q1

REPORT INFORMATION
  Report Type: Spontaneous
  Country: CA (occurrence: CA)
  Receive Date: 20210320
  Receipt Date: 20210320
  Transmission Date: 20210420
  Serious: Yes (Death, Life-Threatening, Hospitalization, Other)
  Sender: FDA-Public Use
  Company Number: CA-AMGEN-CANSP2021039992

PATIENT

DRUGS (7)
  1. MTX [METHOTREXATE] [Concomitant]
     Active Substance: METHOTREXATE SODIUM
     Indication: CENTRAL NERVOUS SYSTEM LYMPHOMA
     Dosage: 5 GRAM
     Route: 013
  2. FOLINIC ACID [Concomitant]
     Active Substance: LEUCOVORIN
     Indication: CENTRAL NERVOUS SYSTEM LYMPHOMA
     Dosage: UNK, USED AT 36 H AFTER MTX ADMINISTRATION
  3. FILGRASTIM [Suspect]
     Active Substance: FILGRASTIM
     Indication: PROPHYLAXIS
     Dosage: 5 MICROGRAM/KILOGRAM, FOR 7 DAYS
     Route: 058
  4. CYCLOPHOSPHAMIDE. [Concomitant]
     Active Substance: CYCLOPHOSPHAMIDE
     Indication: CENTRAL NERVOUS SYSTEM LYMPHOMA
     Dosage: 660 MILLIGRAM/SQ. METER
     Route: 042
  5. MANNITOL. [Concomitant]
     Active Substance: MANNITOL
     Dosage: UNK
  6. ETOPOSIDE PHOSPHATE [Concomitant]
     Active Substance: ETOPOSIDE PHOSPHATE
     Indication: CENTRAL NERVOUS SYSTEM LYMPHOMA
     Dosage: 400 MILLIGRAM/SQ. METER
     Route: 042
  7. CARBOPLATIN. [Concomitant]
     Active Substance: CARBOPLATIN
     Indication: CENTRAL NERVOUS SYSTEM LYMPHOMA
     Dosage: 400 MILLIGRAM/SQ. METER
     Route: 013

REACTIONS (13)
  - Lacunar stroke [Unknown]
  - Cerebrovascular accident [Unknown]
  - Neutropenia [Unknown]
  - Pneumonia [Unknown]
  - Status epilepticus [Recovering/Resolving]
  - Thrombocytopenia [Unknown]
  - Transient ischaemic attack [Unknown]
  - Anaemia [Unknown]
  - Seizure [Unknown]
  - Pulmonary embolism [Unknown]
  - Death [Fatal]
  - Central nervous system lymphoma [Fatal]
  - Sepsis [Unknown]
